FAERS Safety Report 4593248-7 (Version None)
Quarter: 2005Q1

REPORT INFORMATION
  Report Type: 
  Country: None (occurrence: None)
  Receive Date: 20050224
  Receipt Date: 20040324
  Transmission Date: 20050727
  Serious: No
  Sender: FDA-Public Use
  Company Number: US-BRISTOL-MYERS SQUIBB COMPANY-12544060

PATIENT
  Age: 27 Year
  Sex: Male
  Weight: 57 kg

DRUGS (1)
  1. EXCEDRIN (MIGRAINE) [Suspect]
     Indication: TENSION HEADACHE
     Route: 048
     Dates: start: 20040324, end: 20040324

REACTIONS (2)
  - PARAESTHESIA [None]
  - SKIN BURNING SENSATION [None]
